FAERS Safety Report 14633878 (Version 1)
Quarter: 2018Q1

REPORT INFORMATION
  Report Type: Spontaneous
  Country: DE (occurrence: DE)
  Receive Date: 20180314
  Receipt Date: 20180314
  Transmission Date: 20180509
  Serious: Yes (Hospitalization, Other)
  Sender: FDA-Public Use
  Company Number: DE-CIPLA LTD.-2018DE11040

PATIENT

DRUGS (5)
  1. ESCITALOPRAM [Interacting]
     Active Substance: ESCITALOPRAM OXALATE
     Dosage: 10 GTT, DAILY DOSE: 10 GTT DROP(S) EVERY DAY
     Route: 048
  2. ESCITALOPRAM [Interacting]
     Active Substance: ESCITALOPRAM OXALATE
     Dosage: 20 GTT, DAILY DOSE: 20 GTT DROP(S) EVERY DAY
     Route: 048
  3. VITAMIN D2 + CALCIUM               /00202201/ [Concomitant]
     Indication: NUTRITIONAL SUPPLEMENTATION
     Dosage: UNK
     Route: 065
  4. ESCITALOPRAM [Suspect]
     Active Substance: ESCITALOPRAM OXALATE
     Indication: ANXIETY DISORDER
     Dosage: 5 GTT, DAILY DOSE: 5 GTT DROP(S) EVERY DAY
     Route: 048
  5. ABILIFY [Interacting]
     Active Substance: ARIPIPRAZOLE
     Indication: PRODUCT USED FOR UNKNOWN INDICATION
     Dosage: UNK
     Route: 065

REACTIONS (7)
  - Drug administered to patient of inappropriate age [Unknown]
  - Accidental overdose [Unknown]
  - Hospitalisation [Unknown]
  - Disinhibition [Recovering/Resolving]
  - Therapy change [Unknown]
  - Abnormal behaviour [Recovering/Resolving]
  - Drug interaction [Unknown]
